FAERS Safety Report 6685234-8 (Version None)
Quarter: 2010Q2

REPORT INFORMATION
  Report Type: 
  Country: None (occurrence: None)
  Receive Date: 20100416
  Receipt Date: 20100408
  Transmission Date: 20101027
  Serious: Yes (Other)
  Sender: FDA-Public Use
  Company Number: US-ABBOTT-09P-163-0577540-00

PATIENT
  Sex: Female
  Weight: 64.468 kg

DRUGS (3)
  1. SYNTHROID [Suspect]
     Indication: HYPOTHYROIDISM
     Route: 048
     Dates: start: 20020101
  2. PREMARIN [Concomitant]
     Indication: MENOPAUSE
     Route: 048
  3. PROVERA [Concomitant]
     Indication: DRUG USE FOR UNKNOWN INDICATION
     Dosage: FOR 10 TEN DAYS EVERY OTHER MONTH
     Route: 048

REACTIONS (5)
  - BLOOD THYROID STIMULATING HORMONE DECREASED [None]
  - BREAST CANCER IN SITU [None]
  - INSOMNIA [None]
  - NIGHTMARE [None]
  - PHYSICAL BREAST EXAMINATION ABNORMAL [None]
